FAERS Safety Report 5738288-7 (Version None)
Quarter: 2008Q2

REPORT INFORMATION
  Report Type: 
  Country: None (occurrence: None)
  Receive Date: 20080513
  Receipt Date: 20080430
  Transmission Date: 20081010
  Serious: Yes (Other)
  Sender: FDA-Public Use
  Company Number: S08-USA-01629-01

PATIENT
  Age: 16 Year
  Sex: Male

DRUGS (1)
  1. LEXAPRO [Suspect]
     Indication: DEPRESSION
     Dates: start: 20020101, end: 20020101

REACTIONS (7)
  - ABNORMAL SENSATION IN EYE [None]
  - ANGER [None]
  - HALLUCINATION, AUDITORY [None]
  - HEADACHE [None]
  - LOSS OF CONSCIOUSNESS [None]
  - SENSORY DISTURBANCE [None]
  - VISUAL DISTURBANCE [None]
